FAERS Safety Report 6851113-6 (Version None)
Quarter: 2010Q3

REPORT INFORMATION
  Report Type: 
  Country: None (occurrence: None)
  Receive Date: 20100716
  Receipt Date: 20071027
  Transmission Date: 20110219
  Serious: No
  Sender: FDA-Public Use
  Company Number: US-PFIZER INC-2007091840

PATIENT
  Sex: Female
  Weight: 51.7 kg

DRUGS (6)
  1. CHANTIX [Suspect]
     Indication: SMOKING CESSATION THERAPY
     Route: 048
     Dates: start: 20071001
  2. LEXAPRO [Suspect]
     Indication: DEPRESSION
     Dates: start: 20070101
  3. LEXAPRO [Suspect]
     Indication: ANXIETY
  4. NEXIUM [Concomitant]
  5. FLEXERIL [Concomitant]
  6. VALIUM [Concomitant]

REACTIONS (1)
  - SOMNOLENCE [None]
